FAERS Safety Report 6125272-7 (Version None)
Quarter: 2009Q1

REPORT INFORMATION
  Report Type: 
  Country: None (occurrence: None)
  Receive Date: 20090320
  Receipt Date: 20090311
  Transmission Date: 20090719
  Serious: Yes (Other)
  Sender: FDA-Public Use
  Company Number: PHHY2009CH08944

PATIENT
  Age: 81 Year
  Sex: Male

DRUGS (7)
  1. LOPRESSOR [Suspect]
     Dosage: 50 MG, UNK
     Route: 048
     Dates: end: 20090120
  2. LOPRESSOR [Suspect]
     Dosage: 50 MG, UNK
     Route: 048
     Dates: start: 20090122
  3. ASPIRIN [Concomitant]
     Dosage: 100 MG, UNK
     Route: 048
  4. ZESTRIL [Concomitant]
     Dosage: 5 MG, UNK
     Route: 048
  5. INEGY [Concomitant]
     Dosage: 20/20 MG
     Route: 048
  6. CORTISONE [Concomitant]
     Dosage: 5 MG, UNK
     Route: 048
  7. NEXIUM [Concomitant]
     Dosage: 40 MG, UNK
     Route: 048

REACTIONS (6)
  - ATRIOVENTRICULAR BLOCK [None]
  - BRADYCARDIA [None]
  - CARDIAC PACEMAKER INSERTION [None]
  - COLECTOMY [None]
  - CORONARY ARTERY OCCLUSION [None]
  - HYPOTENSION [None]
